FAERS Safety Report 10192162 (Version 1)
Quarter: 2014Q2

REPORT INFORMATION
  Report Type: Report from Study
  Country: US (occurrence: US)
  Receive Date: 20140523
  Receipt Date: 20140523
  Transmission Date: 20141212
  Serious: Yes (Other)
  Sender: FDA-Public Use
  Company Number: US-JNJFOC-20140511375

PATIENT
  Sex: Female
  Weight: 79.38 kg

DRUGS (11)
  1. REMICADE [Suspect]
     Indication: RHEUMATOID ARTHRITIS
     Route: 042
  2. REMICADE [Suspect]
     Indication: RHEUMATOID ARTHRITIS
     Route: 042
     Dates: end: 2006
  3. REMICADE [Suspect]
     Indication: RHEUMATOID ARTHRITIS
     Route: 042
     Dates: start: 2000
  4. METHOTREXATE [Concomitant]
     Indication: RHEUMATOID ARTHRITIS
     Route: 048
  5. SULFASALAZINE [Concomitant]
     Indication: RHEUMATOID ARTHRITIS
     Dosage: 5 TABLETS OF 500 MG.
     Route: 048
  6. CARVEDILOL [Concomitant]
     Indication: HYPERTENSION
     Route: 048
  7. LEVOTHYROXINE [Concomitant]
     Indication: HYPOTHYROIDISM
     Route: 048
  8. GEMFIBROZIL [Concomitant]
     Indication: BLOOD TRIGLYCERIDES INCREASED
     Route: 048
  9. GEMFIBROZIL [Concomitant]
     Indication: BLOOD CHOLESTEROL INCREASED
     Route: 048
  10. LAMOTRIGINE [Concomitant]
     Indication: DEPRESSION
     Route: 048
  11. TRAZODONE [Concomitant]
     Indication: DEPRESSION
     Dosage: AT BEDTIME
     Route: 048

REACTIONS (5)
  - Central nervous system lesion [Recovering/Resolving]
  - Psoriatic arthropathy [Not Recovered/Not Resolved]
  - Joint swelling [Unknown]
  - Swelling [Unknown]
  - Pain [Unknown]
